FAERS Safety Report 16821627 (Version 1)
Quarter: 2019Q3

REPORT INFORMATION
  Report Type: Spontaneous
  Country: GB (occurrence: GB)
  Receive Date: 20190918
  Receipt Date: 20190918
  Transmission Date: 20191005
  Serious: Yes (Other)
  Sender: FDA-Public Use
  Company Number: GB-HRAPH01-201900686

PATIENT
  Sex: Female

DRUGS (1)
  1. CDB (ULIPRISTAL ACETATE) [Suspect]
     Active Substance: ULIPRISTAL ACETATE
     Indication: POST COITAL CONTRACEPTION
     Dates: start: 201906

REACTIONS (3)
  - Abortion spontaneous [Not Recovered/Not Resolved]
  - Unintended pregnancy [Recovered/Resolved]
  - Anembryonic gestation [Recovered/Resolved]

NARRATIVE: CASE EVENT DATE: 201906
